FAERS Safety Report 7027156-9 (Version None)
Quarter: 2010Q4

REPORT INFORMATION
  Report Type: 
  Country: None (occurrence: None)
  Receive Date: 20101004
  Receipt Date: 20100713
  Transmission Date: 20110411
  Serious: Yes (Other)
  Sender: FDA-Public Use
  Company Number: GB-BRISTOL-MYERS SQUIBB COMPANY-15314602

PATIENT
  Age: 77 Year
  Sex: Female

DRUGS (3)
  1. IRBESARTAN [Suspect]
     Indication: HYPERTENSION
     Route: 048
  2. BENDROFLUMETHIAZIDE [Suspect]
     Indication: HYPERTENSION
  3. LACIDIPINE [Suspect]
     Indication: HYPERTENSION
     Route: 048

REACTIONS (3)
  - FOOD INTERACTION [None]
  - HYPERTENSION [None]
  - HYPOTENSION [None]
